FAERS Safety Report 19233498 (Version 1)
Quarter: 2021Q2

REPORT INFORMATION
  Report Type: Spontaneous
  Country: US (occurrence: US)
  Receive Date: 20210507
  Receipt Date: 20210507
  Transmission Date: 20210717
  Serious: Yes (Other)
  Sender: FDA-Public Use
  Company Number: US-ELI_LILLY_AND_COMPANY-US202104012140

PATIENT
  Sex: Female

DRUGS (3)
  1. COVID?19 VACCINE NOS. [Concomitant]
     Active Substance: COVID-19 VACCINE NOS
  2. VERZENIO [Suspect]
     Active Substance: ABEMACICLIB
     Indication: BREAST CANCER METASTATIC
     Dosage: 150 MG, BID
     Route: 048
     Dates: start: 20201216, end: 20210419
  3. LETROZOLE. [Concomitant]
     Active Substance: LETROZOLE
     Indication: BREAST CANCER METASTATIC

REACTIONS (5)
  - Malignant neoplasm progression [Not Recovered/Not Resolved]
  - Dizziness [Unknown]
  - Anxiety [Unknown]
  - Haemorrhoids [Unknown]
  - Headache [Unknown]
